FAERS Safety Report 24749560 (Version 1)
Quarter: 2024Q4

REPORT INFORMATION
  Report Type: Spontaneous
  Country: FR (occurrence: FR)
  Receive Date: 20241218
  Receipt Date: 20241218
  Transmission Date: 20250114
  Serious: Yes (Hospitalization)
  Sender: MYLAN
  Company Number: None

PATIENT
  Age: 52 Year
  Sex: Female

DRUGS (2)
  1. KETOPROFEN [Suspect]
     Active Substance: KETOPROFEN
     Indication: Pain
     Dosage: 100 MILLIGRAM, BID (LP FORM)
     Route: 048
     Dates: start: 20241004, end: 20241011
  2. ACLASTA [Suspect]
     Active Substance: ZOLEDRONIC ACID
     Indication: Osteoporosis prophylaxis
     Dosage: 5 MILLIGRAM, QY
     Route: 042
     Dates: start: 20241017, end: 20241017

REACTIONS (1)
  - Protein-losing gastroenteropathy [Recovered/Resolved]

NARRATIVE: CASE EVENT DATE: 20241018
